FAERS Safety Report 8375472-0 (Version None)
Quarter: 2012Q2

REPORT INFORMATION
  Report Type: 
  Country: None (occurrence: None)
  Receive Date: 20120522
  Receipt Date: 20090128
  Transmission Date: 20120825
  Serious: No
  Sender: FDA-Public Use
  Company Number: 2009BI003168

PATIENT
  Age: 46 Year
  Sex: Female

DRUGS (1)
  1. TYSABRI [Suspect]
     Indication: MULTIPLE SCLEROSIS
     Route: 042
     Dates: start: 20071112, end: 20080324

REACTIONS (8)
  - WEIGHT DECREASED [None]
  - PYREXIA [None]
  - VISION BLURRED [None]
  - MULTIPLE SCLEROSIS [None]
  - DEPRESSION [None]
  - ALOPECIA [None]
  - DIZZINESS [None]
  - HEADACHE [None]
